FAERS Safety Report 6812308-0 (Version None)
Quarter: 2010Q2

REPORT INFORMATION
  Report Type: 
  Country: None (occurrence: None)
  Receive Date: 20100628
  Receipt Date: 20100612
  Transmission Date: 20101027
  Serious: Yes (Life-Threatening, Hospitalization)
  Sender: FDA-Public Use
  Company Number: 1-23017882

PATIENT
  Age: 4 Day
  Sex: Male

DRUGS (1)
  1. AMIODARONE HCL [Suspect]
     Indication: ARRHYTHMIA PROPHYLAXIS
     Dosage: 47 MG/KG OVER 30 MIN, INTRAVENOUS
     Route: 042

REACTIONS (14)
  - ACUTE HEPATIC FAILURE [None]
  - DRUG PRESCRIBING ERROR [None]
  - DRUG TOXICITY [None]
  - ENCEPHALOPATHY [None]
  - GENERAL PHYSICAL HEALTH DETERIORATION [None]
  - LACTIC ACIDOSIS [None]
  - MULTI-ORGAN FAILURE [None]
  - MYOCARDIAL ISCHAEMIA [None]
  - REACTION TO DRUG EXCIPIENTS [None]
  - RENAL FAILURE [None]
  - RESUSCITATION [None]
  - SHOCK [None]
  - SINUS BRADYCARDIA [None]
  - SUPRAVENTRICULAR TACHYCARDIA [None]
